FAERS Safety Report 6894775-X (Version None)
Quarter: 2010Q3

REPORT INFORMATION
  Report Type: 
  Country: None (occurrence: None)
  Receive Date: 20100802
  Receipt Date: 20100723
  Transmission Date: 20110219
  Serious: Yes (Other)
  Sender: FDA-Public Use
  Company Number: US-AMGEN-QUU415139

PATIENT
  Sex: Female
  Weight: 98 kg

DRUGS (54)
  1. EPOGEN [Suspect]
     Indication: DIALYSIS
     Route: 042
     Dates: start: 20000101
  2. HYDRALAZINE HCL [Concomitant]
  3. ALLOPURINOL [Concomitant]
     Dates: start: 20080624
  4. ALPRAZOLAM [Concomitant]
     Dates: start: 20100613
  5. AMBIEN [Concomitant]
     Route: 048
     Dates: start: 20070423
  6. COUMADIN [Concomitant]
     Dates: start: 20100618
  7. INDERAL [Concomitant]
     Dates: start: 20100127
  8. NEXIUM [Concomitant]
     Dates: start: 20050720
  9. NORVASC [Concomitant]
     Route: 048
     Dates: start: 20100127
  10. PHOSLO [Concomitant]
     Dates: start: 20080624
  11. PLAVIX [Concomitant]
     Dates: start: 20100618
  12. ROCALTROL [Concomitant]
     Dates: start: 20060309
  13. SODIUM BICARBONATE [Concomitant]
     Dates: start: 20080130
  14. INFLUENZA VACCINE [Concomitant]
     Route: 030
  15. ALLEGRA [Concomitant]
     Route: 048
     Dates: start: 20060105, end: 20060524
  16. NARATRIPTAN [Concomitant]
     Dates: start: 20090324, end: 20090327
  17. ASPIRIN [Concomitant]
     Dates: start: 20040820, end: 20100702
  18. CALCIUM [Concomitant]
     Dates: start: 20061002, end: 20061106
  19. CELL CEPT [Concomitant]
     Dates: start: 20051220, end: 20060331
  20. CLARITIN [Concomitant]
     Dates: start: 20060511, end: 20060920
  21. DIFLUCAN [Concomitant]
     Dates: start: 20060622, end: 20060920
  22. DILAUDID [Concomitant]
     Route: 048
     Dates: start: 20100111, end: 20100205
  23. ENALAPRIL [Concomitant]
     Dates: start: 20081112, end: 20100127
  24. FIORINAL [Concomitant]
     Dates: start: 20020520, end: 20040820
  25. FLEXERIL [Concomitant]
     Dates: start: 20050607, end: 20060524
  26. FLONASE [Concomitant]
     Dates: start: 20060105, end: 20080310
  27. FLOVENT [Concomitant]
     Dates: start: 20020606, end: 20040820
  28. VENOFER [Concomitant]
  29. HEPARIN [Concomitant]
  30. LEXAPRO [Concomitant]
     Dates: start: 20060105, end: 20060920
  31. LORTAB [Concomitant]
     Dates: start: 20100618, end: 20100702
  32. LYRICA [Concomitant]
     Dates: start: 20100430, end: 20100702
  33. MACROBID [Concomitant]
     Dates: start: 20040820, end: 20061026
  34. MAGNESIUM OXIDE [Concomitant]
     Dates: start: 20061026, end: 20080130
  35. MAXALT [Concomitant]
     Dates: start: 20080624, end: 20081112
  36. NEURONTIN [Concomitant]
     Dates: start: 20100205, end: 20100430
  37. PATANOL [Concomitant]
     Dates: start: 20091110, end: 20100702
  38. POTASSIUM CHLORIDE [Concomitant]
     Dates: start: 20050630, end: 20080130
  39. PREDNISONE [Concomitant]
     Dates: start: 20060202, end: 20060331
  40. PRILOSEC [Concomitant]
     Dates: start: 20050805, end: 20061106
  41. PROGRAF [Concomitant]
     Dates: start: 20040820, end: 20080130
  42. RAPAMUNE [Concomitant]
     Dates: start: 20060418, end: 20080130
  43. REGLAN [Concomitant]
     Dates: start: 20060202, end: 20080130
  44. RENAGEL [Concomitant]
     Dates: start: 20080130, end: 20080625
  45. SEVELAMER [Concomitant]
     Dates: start: 20090324, end: 20100702
  46. SONATA [Concomitant]
     Dates: start: 20090327, end: 20100127
  47. TOPAMAX [Concomitant]
     Dates: start: 20090324, end: 20100702
  48. TRAZODONE [Concomitant]
     Dates: start: 20091204, end: 20100712
  49. TRICOR [Concomitant]
     Dates: start: 20040820, end: 20090403
  50. TRILIPIX [Concomitant]
     Route: 048
     Dates: start: 20090403, end: 20100702
  51. TUMS [Concomitant]
     Dates: start: 20061106, end: 20080130
  52. VICODIN [Concomitant]
     Dates: start: 20050916, end: 20060622
  53. VITAMIN E [Concomitant]
     Dates: start: 20090324, end: 20100702
  54. ZOMIG [Concomitant]
     Dates: start: 20080130, end: 20080310

REACTIONS (7)
  - ANAEMIA [None]
  - COMPLICATIONS OF TRANSPLANTED KIDNEY [None]
  - CONFUSIONAL STATE [None]
  - DYSPNOEA [None]
  - PROCEDURAL PAIN [None]
  - PULMONARY CONGESTION [None]
  - THERAPEUTIC RESPONSE DECREASED [None]
